FAERS Safety Report 15721937 (Version 1)
Quarter: 2018Q4

REPORT INFORMATION
  Report Type: Spontaneous
  Country: ES (occurrence: ES)
  Receive Date: 20181214
  Receipt Date: 20181214
  Transmission Date: 20190205
  Serious: Yes (Other)
  Sender: FDA-Public Use
  Company Number: ES-009507513-1812ESP004053

PATIENT
  Age: 46 Year
  Sex: Male
  Weight: 65 kg

DRUGS (2)
  1. GAVISCON FORTE (ALGINIC ACID (+) ALUMINUM HYDROXIDE (+) CALCIUM CARBON [Suspect]
     Active Substance: ALGINIC ACID\ALUMINUM HYDROXIDE\CALCIUM CARBONATE\MAGNESIUM HYDROXIDE\SODIUM\SODIUM BICARBONATE
     Indication: REFLUX GASTRITIS
     Dosage: ONE TABLET 22-NOV-2018 AT 20:00 AND ANOTHER ONE AT 22:30
     Route: 048
     Dates: start: 20181122, end: 20181123
  2. PROSCAR [Suspect]
     Active Substance: FINASTERIDE
     Indication: ALOPECIA
     Dosage: 1.25 MG EVERY TABLET
     Route: 048
     Dates: start: 20040404, end: 20181123

REACTIONS (1)
  - Ureteric haemorrhage [Recovered/Resolved]

NARRATIVE: CASE EVENT DATE: 20181123
